FAERS Safety Report 9426357 (Version 5)
Quarter: 2014Q3

REPORT INFORMATION
  Report Type: Spontaneous
  Country: DE (occurrence: DE)
  Receive Date: 20130730
  Receipt Date: 20140718
  Transmission Date: 20150326
  Serious: Yes (Death, Hospitalization, Other)
  Sender: FDA-Public Use
  Company Number: DE-AMGEN-DEUSP2013052213

PATIENT
  Age: 69 Year
  Sex: Female
  Weight: 85 kg

DRUGS (21)
  1. VECTIBIX [Suspect]
     Active Substance: PANITUMUMAB
     Indication: PRODUCT USED FOR UNKNOWN INDICATION
     Dosage: 6 MG/KG, 1D, EVERY 14 D, 1 LINE ROUTE OF ADMINISTRATION
     Route: 065
     Dates: start: 20130612, end: 20130723
  2. OXALIPLATIN. [Concomitant]
     Active Substance: OXALIPLATIN
     Indication: METASTASES TO LIVER
  3. OXALIPLATIN. [Concomitant]
     Active Substance: OXALIPLATIN
     Indication: METASTASES TO PERITONEUM
  4. VECTIBIX [Suspect]
     Active Substance: PANITUMUMAB
     Dosage: UNK
     Route: 065
  5. ONCOFOLIC [Concomitant]
     Active Substance: FOLATE SODIUM
     Indication: METASTASES TO LIVER
  6. 5-FU                               /00098801/ [Concomitant]
     Active Substance: FLUOROURACIL
     Indication: METASTASES TO PERITONEUM
  7. NEBIVOLOL [Concomitant]
     Active Substance: NEBIVOLOL
     Dosage: UNK
     Dates: end: 20130724
  8. DOXYCYCLINE. [Suspect]
     Active Substance: DOXYCYCLINE
     Indication: PRODUCT USED FOR UNKNOWN INDICATION
     Dosage: 100 MG, 2/D
     Route: 065
     Dates: start: 20130627, end: 201307
  9. NEXIUM [Concomitant]
     Active Substance: ESOMEPRAZOLE MAGNESIUM
     Dosage: UNK
     Dates: end: 20130724
  10. SIMVASTATIN. [Concomitant]
     Active Substance: SIMVASTATIN
     Dosage: UNK
     Dates: end: 20130724
  11. VECTIBIX [Suspect]
     Active Substance: PANITUMUMAB
     Dosage: UNK
     Route: 065
  12. VECTIBIX [Suspect]
     Active Substance: PANITUMUMAB
     Dosage: UNK
     Route: 065
  13. ERYTHROMYCIN. [Suspect]
     Active Substance: ERYTHROMYCIN
     Indication: PRODUCT USED FOR UNKNOWN INDICATION
     Dosage: UNK UNK, QD, DERMAL ROUTE
     Route: 065
     Dates: start: 20130611, end: 20130721
  14. 5-FU                               /00098801/ [Concomitant]
     Active Substance: FLUOROURACIL
     Indication: METASTASES TO LIVER
     Dosage: 1200 MG, D1+2/14D
     Route: 042
     Dates: start: 20130612, end: 20130711
  15. ONCOFOLIC [Concomitant]
     Active Substance: FOLATE SODIUM
     Indication: METASTASES TO PERITONEUM
  16. 5-FU                               /00098801/ [Concomitant]
     Active Substance: FLUOROURACIL
     Indication: COLON CANCER
     Dosage: 800 MG, D1+2/14D
     Route: 042
     Dates: start: 20130612, end: 20130711
  17. OXALIPLATIN. [Concomitant]
     Active Substance: OXALIPLATIN
     Indication: COLON CANCER
     Dosage: 170 MG, D1/14D
     Route: 042
     Dates: start: 20130612, end: 20130711
  18. CARMEN                             /00740901/ [Concomitant]
     Dosage: UNK
     Dates: end: 20130724
  19. ONCOFOLIC [Concomitant]
     Active Substance: FOLATE SODIUM
     Indication: COLON CANCER
     Dosage: 400 MG, D1+2/14D
     Route: 042
     Dates: start: 20130612, end: 20130711
  20. CITALOPRAM [Concomitant]
     Active Substance: CITALOPRAM HYDROBROMIDE
     Dosage: UNK
     Dates: end: 20130724
  21. ALLOPURINOL. [Concomitant]
     Active Substance: ALLOPURINOL
     Dosage: UNK
     Dates: end: 20130724

REACTIONS (17)
  - Renal failure acute [Fatal]
  - General physical health deterioration [Unknown]
  - Anal stenosis [Unknown]
  - Decreased appetite [Unknown]
  - Syncope [Unknown]
  - Diarrhoea [Unknown]
  - Gastric ulcer [Unknown]
  - Stomatitis [Unknown]
  - Vomiting [Not Recovered/Not Resolved]
  - Nausea [Unknown]
  - Colitis [Unknown]
  - Hyponatraemia [Unknown]
  - Mucosal inflammation [Unknown]
  - Hypotension [Unknown]
  - Haematochezia [Unknown]
  - Hyperuricaemia [Unknown]
  - Back pain [Unknown]

NARRATIVE: CASE EVENT DATE: 20130630
